FAERS Safety Report 22192247 (Version 1)
Quarter: 2023Q2

REPORT INFORMATION
  Report Type: Spontaneous
  Country: US (occurrence: US)
  Receive Date: 20230410
  Receipt Date: 20230410
  Transmission Date: 20230722
  Serious: Yes (Hospitalization, Other)
  Sender: FDA-Public Use
  Company Number: US-JUBILANT CADISTA PHARMACEUTICALS-2023JUB00144

PATIENT
  Age: 9 Decade
  Sex: Male
  Weight: 136.1 kg

DRUGS (11)
  1. METHYLPREDNISOLONE [Suspect]
     Active Substance: METHYLPREDNISOLONE
     Indication: COVID-19 pneumonia
     Dosage: 40 MG IV EVERY 12 HOURS ON HOSPITAL DAY 8 AND HOSPITAL DAY 10
     Route: 042
  2. METHYLPREDNISOLONE [Suspect]
     Active Substance: METHYLPREDNISOLONE
     Indication: Organising pneumonia
     Dosage: 62.5 MG IV EVERY 08 HOURS ON HOSPITAL DAY 4 AND HOSPITAL DAY 5
     Route: 042
  3. METHYLPREDNISOLONE [Suspect]
     Active Substance: METHYLPREDNISOLONE
     Dosage: 62.5 MG IV EVERY 06 HOURS ON HOSPITAL DAY 6
     Route: 042
  4. METHYLPREDNISOLONE [Suspect]
     Active Substance: METHYLPREDNISOLONE
     Dosage: 62.5 MG IV EVERY 12 HOURS ON HOSPITAL DAY 1 TO HOSPITAL DAY 3
     Route: 042
  5. METHYLPREDNISOLONE [Suspect]
     Active Substance: METHYLPREDNISOLONE
     Dosage: 62.5 MG IV EVERY 12 HOURS ON HOSPITAL DAY 7
     Route: 042
  6. METHYLPREDNISOLONE [Suspect]
     Active Substance: METHYLPREDNISOLONE
     Dosage: 125 MG IV, 1 TIMES A DAY-AT 08:00 ON HOSPITAL DAY 19
     Route: 042
  7. METHYLPREDNISOLONE [Suspect]
     Active Substance: METHYLPREDNISOLONE
     Dosage: 125 MG IV EVERY 06 HOURS ON HOSPITAL DAY 12
     Route: 042
  8. METHYLPREDNISOLONE [Suspect]
     Active Substance: METHYLPREDNISOLONE
     Dosage: 125 MG IV EVERY 12 HOURS ON HOSPITAL DAY 13 TO DAY 15, 125 MG IV, 2 TIMES A DAY-AT 08:30  AND 20:30
     Route: 042
  9. METHYLPREDNISOLONE [Suspect]
     Active Substance: METHYLPREDNISOLONE
     Dosage: 125 MG IV EVERY 12 HOURS ON HOSPITAL DAY 11
     Route: 042
  10. PREDNISONE [Suspect]
     Active Substance: PREDNISONE
     Indication: Organising pneumonia
     Dosage: 60 MG, ONCE A DAY EVERY MORNING ON DAY 20 AT 07:30 AND ON DAY 21 AT 08:00
     Route: 048
  11. PREDNISONE [Suspect]
     Active Substance: PREDNISONE
     Indication: COVID-19 pneumonia

REACTIONS (1)
  - Hyperglycaemia [Recovering/Resolving]
